FAERS Safety Report 7817693-9 (Version None)
Quarter: 2011Q4

REPORT INFORMATION
  Report Type: 
  Country: None (occurrence: None)
  Receive Date: 20111017
  Receipt Date: 20111011
  Transmission Date: 20120403
  Serious: Yes (Other)
  Sender: FDA-Public Use
  Company Number: US-B.I. PHARMACEUTICALS,INC./RIDGEFIELD-2011-BP-19799BP

PATIENT
  Age: 81 Year
  Sex: Male
  Weight: 100.24 kg

DRUGS (6)
  1. ASPIRIN [Concomitant]
  2. PRADAXA [Suspect]
     Dosage: 300 MG
     Dates: start: 20110701, end: 20110812
  3. PLAVIX [Concomitant]
  4. DILTIAZEM HCL [Concomitant]
  5. LISINOPRIL [Concomitant]
  6. LASIX [Concomitant]

REACTIONS (4)
  - ASTHMA [None]
  - CARDIAC FAILURE CONGESTIVE [None]
  - CHRONIC OBSTRUCTIVE PULMONARY DISEASE [None]
  - DYSPNOEA [None]
